FAERS Safety Report 15740325 (Version 1)
Quarter: 2018Q4

REPORT INFORMATION
  Report Type: Spontaneous
  Country: US (occurrence: US)
  Receive Date: 20181219
  Receipt Date: 20181219
  Transmission Date: 20190205
  Serious: Yes (Other)
  Sender: FDA-Public Use
  Company Number: None

PATIENT
  Age: 67 Year
  Sex: Female
  Weight: 65.25 kg

DRUGS (2)
  1. VALSARTAN/HCTZ TABS 80/12.5 GENERIC FOR: DIOVAN HCT TABS [Suspect]
     Active Substance: HYDROCHLOROTHIAZIDE\VALSARTAN
     Indication: BLOOD PRESSURE INCREASED
     Dosage: ?          QUANTITY:1 TEASPOON(S);?
     Route: 048
  2. MULTIVITAMIN [Concomitant]
     Active Substance: VITAMINS

REACTIONS (6)
  - Photopsia [None]
  - Migraine [None]
  - Headache [None]
  - Migraine with aura [None]
  - Drug ineffective [None]
  - Hypertension [None]

NARRATIVE: CASE EVENT DATE: 20181208
